FAERS Safety Report 11588664 (Version 1)
Quarter: 2015Q4

REPORT INFORMATION
  Report Type: Spontaneous
  Country: US (occurrence: None)
  Receive Date: 20151001
  Receipt Date: 20151001
  Transmission Date: 20160304
  Serious: Yes (Other)
  Sender: FDA-Public Use
  Company Number: None

PATIENT
  Age: 50 Year
  Sex: Female
  Weight: 61.24 kg

DRUGS (4)
  1. PROTONIX [Concomitant]
     Active Substance: PANTOPRAZOLE SODIUM
  2. PANTOPRAZOLE [Suspect]
     Active Substance: PANTOPRAZOLE SODIUM
     Indication: GASTROOESOPHAGEAL REFLUX DISEASE
     Dosage: 1
     Route: 048
     Dates: start: 20150630, end: 20150915
  3. INDOMETHACIN. [Concomitant]
     Active Substance: INDOMETHACIN
  4. SYNTHROID [Concomitant]
     Active Substance: LEVOTHYROXINE SODIUM

REACTIONS (10)
  - Malaise [None]
  - Chest pain [None]
  - Abdominal pain upper [None]
  - Nausea [None]
  - Abdominal discomfort [None]
  - Product quality issue [None]
  - Headache [None]
  - Gastrooesophageal reflux disease [None]
  - Back pain [None]
  - Dyspepsia [None]

NARRATIVE: CASE EVENT DATE: 20150912
